FAERS Safety Report 25973214 (Version 1)
Quarter: 2025Q4

REPORT INFORMATION
  Report Type: Spontaneous
  Country: EU (occurrence: EU)
  Receive Date: 20251029
  Receipt Date: 20251029
  Transmission Date: 20260117
  Serious: Yes (Hospitalization)
  Sender: AUROBINDO
  Company Number: EU-LRB-01087102

PATIENT
  Age: 78 Year
  Sex: Female
  Weight: 47 kg

DRUGS (7)
  1. AMOXICILLIN [Suspect]
     Active Substance: AMOXICILLIN
     Indication: Pneumonia
     Dosage: 1000 MILLIGRAM, FOUR TIMES/DAY (4 MAAL DAAGS VOOR 5 DAGEN)
     Route: 065
     Dates: start: 20250917, end: 20250922
  2. ASPIRIN [Concomitant]
     Active Substance: ASPIRIN
     Indication: Product used for unknown indication
     Dosage: TABLET, 80 MG (MILLIGRAM)
     Route: 048
  3. ESOMEPRAZOLE [Concomitant]
     Active Substance: ESOMEPRAZOLE
     Indication: Product used for unknown indication
     Dosage: MAAGSAPRESISTENTE TABLET, 40 MG (MILLIGRAM)
     Route: 048
  4. MONTELUKAST [Concomitant]
     Active Substance: MONTELUKAST
     Indication: Product used for unknown indication
     Dosage: OMHULDE TABLET, 10 MG (MILLIGRAM)
     Route: 048
  5. PROLIA [Concomitant]
     Active Substance: DENOSUMAB
     Indication: Product used for unknown indication
     Dosage: INJECTIEVLOEISTOF, 60 MG/ML (MILLIGRAM PER MILLILITER)
     Route: 065
  6. VERAPAMIL [Concomitant]
     Active Substance: VERAPAMIL HYDROCHLORIDE
     Indication: Product used for unknown indication
     Dosage: TABLET MET GEREGULEERDE AFGIFTE, 120 MG (MILLIGRAM)
     Route: 048
  7. ALBUTEROL [Concomitant]
     Active Substance: ALBUTEROL
     Indication: Product used for unknown indication
     Dosage: INHALATIEPOEDER, 200 ?G (MICROGRAM)

REACTIONS (4)
  - Tongue erythema [Recovering/Resolving]
  - Dyspnoea [Recovering/Resolving]
  - Sensation of foreign body [Recovering/Resolving]
  - Hypersensitivity [Recovering/Resolving]
